FAERS Safety Report 9304459 (Version 7)
Quarter: 2014Q2

REPORT INFORMATION
  Report Type: Spontaneous
  Country: US (occurrence: US)
  Receive Date: 20130523
  Receipt Date: 20140421
  Transmission Date: 20141212
  Serious: Yes (Hospitalization, Disabling, Other)
  Sender: FDA-Public Use
  Company Number: US-009507513-1202USA03019

PATIENT
  Age: 79 Year
  Sex: Female
  Weight: 67.12 kg

DRUGS (3)
  1. FOSAMAX [Suspect]
     Indication: OSTEOPOROSIS
     Dosage: 70 MG, QW
     Route: 048
     Dates: start: 20020101, end: 20060630
  2. FOSAMAX [Suspect]
     Indication: BONE DISORDER
     Dosage: 5 MG, UNK
     Route: 048
     Dates: start: 20020110
  3. TYLENOL [Concomitant]

REACTIONS (37)
  - Osteoarthritis [Not Recovered/Not Resolved]
  - Nodule [Not Recovered/Not Resolved]
  - Sciatica [Not Recovered/Not Resolved]
  - Spinal fusion surgery [Unknown]
  - Pain in extremity [Not Recovered/Not Resolved]
  - Arthralgia [Not Recovered/Not Resolved]
  - Pain in extremity [Not Recovered/Not Resolved]
  - Concussion [Not Recovered/Not Resolved]
  - Fall [Not Recovered/Not Resolved]
  - Bone loss [Not Recovered/Not Resolved]
  - Arthritis [Not Recovered/Not Resolved]
  - Head injury [Unknown]
  - Tooth injury [Not Recovered/Not Resolved]
  - Arthropathy [Unknown]
  - Intervertebral disc degeneration [Unknown]
  - Hypertension [Unknown]
  - Joint injury [Not Recovered/Not Resolved]
  - Bronchitis [Unknown]
  - Radius fracture [Not Recovered/Not Resolved]
  - Irritable bowel syndrome [Unknown]
  - Fibromyalgia [Unknown]
  - Pain [Unknown]
  - Chondrocalcinosis [Unknown]
  - Osteoarthritis [Unknown]
  - Joint effusion [Unknown]
  - Irritable bowel syndrome [Unknown]
  - Asthenia [Not Recovered/Not Resolved]
  - Drug ineffective [Unknown]
  - Amnesia [Unknown]
  - Joint injury [Unknown]
  - Vision blurred [Unknown]
  - Blood pressure increased [Unknown]
  - Malaise [Not Recovered/Not Resolved]
  - Wound [Unknown]
  - Abdominal discomfort [Unknown]
  - Suicidal ideation [Unknown]
  - Burns third degree [Unknown]
